FAERS Safety Report 22359733 (Version 1)
Quarter: 2023Q2

REPORT INFORMATION
  Report Type: Spontaneous
  Country: JP (occurrence: JP)
  Receive Date: 20230524
  Receipt Date: 20230524
  Transmission Date: 20230722
  Serious: Yes (Other)
  Sender: FDA-Public Use
  Company Number: JP-GUERBETG_JAPAN-JP-20230059

PATIENT
  Age: 52 Year
  Sex: Male

DRUGS (4)
  1. LIPIODOL [Suspect]
     Active Substance: ETHIODIZED OIL
     Indication: Therapeutic procedure
     Dosage: LIPIODOL IN MIXTURE WITH N-BUTYL-2-CYANOACRYLATE (NBCA).
  2. UNSPECIFIED INGREDIENT [Suspect]
     Active Substance: UNSPECIFIED INGREDIENT
     Indication: Therapeutic procedure
     Dosage: LIPIODOL IN MIXTURE WITH N-BUTYL-2-CYANOACRYLATE (NBCA).
  3. MIDAZOLAM [Concomitant]
     Active Substance: MIDAZOLAM
     Indication: Sedation
  4. MEPERIDINE [Concomitant]
     Active Substance: MEPERIDINE
     Indication: Sedation

REACTIONS (2)
  - Foreign body reaction [Recovered/Resolved]
  - Product use in unapproved indication [Recovered/Resolved]
